FAERS Safety Report 7235021-7 (Version None)
Quarter: 2011Q1

REPORT INFORMATION
  Report Type: 
  Country: None (occurrence: None)
  Receive Date: 20110120
  Receipt Date: 20110114
  Transmission Date: 20110831
  Serious: Yes (Other)
  Sender: FDA-Public Use
  Company Number: US-AMGEN-USASP2011002602

PATIENT

DRUGS (3)
  1. INSULIN [Concomitant]
  2. ANTIHYPERTENSIVES [Concomitant]
  3. ARANESP [Suspect]
     Indication: PRODUCT USED FOR UNKNOWN INDICATION
     Dates: start: 20101208

REACTIONS (8)
  - GAIT DISTURBANCE [None]
  - PERIORBITAL HAEMATOMA [None]
  - WEIGHT INCREASED [None]
  - HYPERTENSION [None]
  - EYE HAEMORRHAGE [None]
  - LUNG DISORDER [None]
  - OEDEMA PERIPHERAL [None]
  - SWELLING FACE [None]
